FAERS Safety Report 4937135-0 (Version None)
Quarter: 2006Q1

REPORT INFORMATION
  Report Type: 
  Country: None (occurrence: None)
  Receive Date: 20060302
  Receipt Date: 20060215
  Transmission Date: 20060701
  Serious: Yes (Hospitalization)
  Sender: FDA-Public Use
  Company Number: DSA_81558_2006

PATIENT
  Age: 49 Year
  Sex: Female
  Weight: 41 kg

DRUGS (5)
  1. XYREM [Suspect]
     Indication: NARCOLEPSY
     Dosage: 3.5 G TWICE NIGHTLY PO
     Route: 048
     Dates: start: 20051223, end: 20060128
  2. VENLAFAXINE HCL [Concomitant]
  3. QUERTO [Concomitant]
  4. CAPTOHEXAL [Concomitant]
  5. PRESOMEN /00073001/ [Concomitant]

REACTIONS (6)
  - AGITATION [None]
  - CARDIAC FAILURE [None]
  - CONDITION AGGRAVATED [None]
  - HYPERTENSIVE CRISIS [None]
  - NIGHTMARE [None]
  - PSYCHOMOTOR HYPERACTIVITY [None]
